FAERS Safety Report 5088850-2 (Version None)
Quarter: 2006Q3

REPORT INFORMATION
  Report Type: 
  Country: None (occurrence: None)
  Receive Date: 20060825
  Receipt Date: 20060817
  Transmission Date: 20061208
  Serious: Yes (Other)
  Sender: FDA-Public Use
  Company Number: US-AVENTIS-200616885US

PATIENT
  Sex: Female
  Weight: 105 kg

DRUGS (10)
  1. LANTUS [Suspect]
     Indication: DIABETES MELLITUS NON-INSULIN-DEPENDENT
     Route: 058
  2. LANTUS [Suspect]
     Route: 058
  3. LANTUS [Suspect]
     Route: 058
     Dates: start: 20060714
  4. DRUG USED IN DIABETES [Suspect]
     Indication: DIABETES MELLITUS NON-INSULIN-DEPENDENT
     Route: 058
     Dates: start: 20060301, end: 20060613
  5. DRUG USED IN DIABETES [Suspect]
     Route: 058
     Dates: start: 20060614
  6. PRANDIN [Concomitant]
     Dosage: DOSE: UNK
  7. PRANDIN [Concomitant]
     Dosage: DOSE: UNK
  8. METFORMIN [Concomitant]
     Dosage: DOSE: UNK
  9. METFORMIN [Concomitant]
     Dosage: DOSE: UNK
  10. METFORMIN [Concomitant]
     Dosage: DOSE: UNK

REACTIONS (11)
  - BLOOD GLUCOSE DECREASED [None]
  - CHOLELITHIASIS [None]
  - COLD SWEAT [None]
  - DECREASED APPETITE [None]
  - EARLY SATIETY [None]
  - HEPATIC ENZYME INCREASED [None]
  - HERNIA [None]
  - INJECTION SITE BRUISING [None]
  - LIVER FUNCTION TEST ABNORMAL [None]
  - NERVOUSNESS [None]
  - WEIGHT DECREASED [None]
